FAERS Safety Report 10308769 (Version 2)
Quarter: 2014Q3

REPORT INFORMATION
  Report Type: Spontaneous
  Country: US (occurrence: US)
  Receive Date: 20140716
  Receipt Date: 20140716
  Transmission Date: 20150326
  Serious: Yes (Hospitalization, Other)
  Sender: FDA-Public Use
  Company Number: US-009507513-2010SP062590

PATIENT
  Sex: Female
  Weight: 48.99 kg

DRUGS (2)
  1. NUVARING [Suspect]
     Active Substance: ETHINYL ESTRADIOL\ETONOGESTREL
     Indication: CONTRACEPTION
     Route: 067
     Dates: start: 200809, end: 20081214
  2. ASPIRIN (+) CAFFEINE (+) SALICYLAMIDE [Concomitant]
     Indication: HEADACHE
     Dosage: BC POWDER

REACTIONS (3)
  - Chlamydial infection [Unknown]
  - Deep vein thrombosis [Unknown]
  - Thrombophlebitis [Unknown]

NARRATIVE: CASE EVENT DATE: 20081218
